FAERS Safety Report 6191535-2 (Version None)
Quarter: 2009Q2

REPORT INFORMATION
  Report Type: 
  Country: None (occurrence: None)
  Receive Date: 20090513
  Receipt Date: 20090427
  Transmission Date: 20091009
  Serious: Yes (Other)
  Sender: FDA-Public Use
  Company Number: FR-GENENTECH-282675

PATIENT
  Age: 59 Year
  Sex: Male

DRUGS (4)
  1. AVASTIN [Suspect]
     Indication: GLIOBLASTOMA
     Dosage: UNK
     Route: 065
  2. IRINOTECAN HCL [Suspect]
     Indication: GLIOBLASTOMA
     Route: 065
  3. CORTICOTHERAPY [Concomitant]
     Indication: DRUG USE FOR UNKNOWN INDICATION
     Dosage: 1 MG/KG, UNK
  4. METHYLPREDNISOLONE 4MG TAB [Concomitant]
     Indication: DRUG USE FOR UNKNOWN INDICATION
     Dosage: 60 MG, QD

REACTIONS (1)
  - FUNGAL INFECTION [None]
